FAERS Safety Report 6315406-3 (Version None)
Quarter: 2009Q3

REPORT INFORMATION
  Report Type: 
  Country: None (occurrence: None)
  Receive Date: 20090819
  Receipt Date: 20090814
  Transmission Date: 20100115
  Serious: Yes (Death)
  Sender: FDA-Public Use
  Company Number: KR-SANOFI-SYNTHELABO-A01200908549

PATIENT
  Age: 72 Year
  Sex: Male
  Weight: 67 kg

DRUGS (3)
  1. CLEXANE [Suspect]
     Indication: STENT PLACEMENT
     Dosage: 60 MG/0.6 ML EVERY 12 HOURS
     Route: 058
  2. CLEXANE [Suspect]
     Dosage: 67 MG/0.6 ML EVERY 12 HOURS
     Route: 058
  3. PLAVIX [Suspect]
     Indication: STENT PLACEMENT
     Dosage: UNK
     Route: 048

REACTIONS (3)
  - CHEST PAIN [None]
  - CONVULSION [None]
  - DEATH [None]
